FAERS Safety Report 5924765-2 (Version None)
Quarter: 2008Q4

REPORT INFORMATION
  Report Type: 
  Country: None (occurrence: None)
  Receive Date: 20081017
  Receipt Date: 20081014
  Transmission Date: 20090506
  Serious: Yes (Hospitalization)
  Sender: FDA-Public Use
  Company Number: A0751946A

PATIENT
  Age: 59 Year
  Sex: Female

DRUGS (2)
  1. ASPIRIN + CAFFEINE + SALICYLAMIDE (FORMULATION UNKNOWN) (ASPIRIN+CAFFE [Suspect]
     Indication: MIGRAINE
  2. LEVOTHYROXINE SODIUM [Concomitant]

REACTIONS (6)
  - DIZZINESS [None]
  - HYPOACUSIS [None]
  - INTENTIONAL DRUG MISUSE [None]
  - OVERDOSE [None]
  - THERAPEUTIC AGENT TOXICITY [None]
  - TINNITUS [None]
